FAERS Safety Report 18346939 (Version 21)
Quarter: 2025Q3

REPORT INFORMATION
  Report Type: Report from Study
  Country: US (occurrence: US)
  Receive Date: 20201005
  Receipt Date: 20250812
  Transmission Date: 20251020
  Serious: Yes (Hospitalization, Other)
  Sender: TAKEDA
  Company Number: US-SHIRE-US202032195

PATIENT
  Sex: Female
  Weight: 63 kg

DRUGS (28)
  1. HUMAN IMMUNOGLOBULIN G\HYALURONIDASE RECOMBINANT HUMAN [Suspect]
     Active Substance: HUMAN IMMUNOGLOBULIN G\HYALURONIDASE (HUMAN RECOMBINANT)
     Indication: Immunodeficiency common variable
     Dosage: 20 GRAM, Q2WEEKS
  2. DIPHENHYDRAMINE [Concomitant]
     Active Substance: DIPHENHYDRAMINE
  3. VITAMIN D [Concomitant]
     Active Substance: VITAMIN D NOS
  4. BUDESONIDE [Concomitant]
     Active Substance: BUDESONIDE
  5. SUMATRIPTAN SUCCINATE [Concomitant]
     Active Substance: SUMATRIPTAN SUCCINATE
  6. EPINEPHRINE [Concomitant]
     Active Substance: EPINEPHRINE
  7. SODIUM CHLORIDE [Concomitant]
     Active Substance: SODIUM CHLORIDE
  8. GABAPENTIN [Concomitant]
     Active Substance: GABAPENTIN
  9. PREDNISONE [Concomitant]
     Active Substance: PREDNISONE
  10. LEVOCETIRIZINE DIHYDROCHLORIDE [Concomitant]
     Active Substance: LEVOCETIRIZINE DIHYDROCHLORIDE
  11. ACETAMINOPHEN [Concomitant]
     Active Substance: ACETAMINOPHEN
  12. SODIUM CHLORIDE [Concomitant]
     Active Substance: SODIUM CHLORIDE
  13. LEVOFLOXACIN [Concomitant]
     Active Substance: LEVOFLOXACIN
  14. VALSARTAN [Concomitant]
     Active Substance: VALSARTAN
  15. VITAMINS [Concomitant]
     Active Substance: VITAMINS
  16. MONTELUKAST SODIUM [Concomitant]
     Active Substance: MONTELUKAST SODIUM
  17. Lmx [Concomitant]
  18. CYMBALTA [Concomitant]
     Active Substance: DULOXETINE HYDROCHLORIDE
  19. ACIDOPHILUS [Concomitant]
     Active Substance: LACTOBACILLUS ACIDOPHILUS
  20. BENZONATATE [Concomitant]
     Active Substance: BENZONATATE
  21. HORIZANT [Concomitant]
     Active Substance: GABAPENTIN ENACARBIL
  22. AMLODIPINE BESYLATE [Concomitant]
     Active Substance: AMLODIPINE BESYLATE
  23. ASPIRIN [Concomitant]
     Active Substance: ASPIRIN
  24. ALBUTEROL [Concomitant]
     Active Substance: ALBUTEROL
  25. CODEINE\PROMETHAZINE [Concomitant]
     Active Substance: CODEINE\PROMETHAZINE
  26. DIPHENHYDRAMINE HYDROCHLORIDE [Concomitant]
     Active Substance: DIPHENHYDRAMINE HYDROCHLORIDE
  27. MEDROL [Concomitant]
     Active Substance: METHYLPREDNISOLONE
  28. ARMOUR THYROID [Concomitant]
     Active Substance: THYROID, PORCINE

REACTIONS (32)
  - Neuropathy peripheral [Unknown]
  - Limb injury [Unknown]
  - Blood calcium decreased [Unknown]
  - Pneumonia [Unknown]
  - Tuberculosis [Unknown]
  - Eye infection intraocular [Unknown]
  - Type 2 diabetes mellitus [Unknown]
  - Pulmonary fibrosis [Unknown]
  - Asthma [Unknown]
  - Sinusitis [Unknown]
  - Allergic sinusitis [Unknown]
  - Illness [Unknown]
  - Cardiovascular disorder [Unknown]
  - Joint swelling [Unknown]
  - Nasopharyngitis [Unknown]
  - Lung cyst [Unknown]
  - Infection [Unknown]
  - Sinus disorder [Unknown]
  - Sinus headache [Unknown]
  - Device issue [Unknown]
  - Product dose omission issue [Unknown]
  - Inappropriate schedule of product administration [Unknown]
  - White blood cell count decreased [Unknown]
  - Pharyngitis [Unknown]
  - Weight fluctuation [Unknown]
  - Thyroid disorder [Unknown]
  - Injection site swelling [Unknown]
  - Dizziness [Unknown]
  - Asthenia [Unknown]
  - Paraesthesia [Unknown]
  - Headache [Recovering/Resolving]
  - Nausea [Unknown]
